FAERS Safety Report 9566843 (Version 1)
Quarter: 2013Q3

REPORT INFORMATION
  Report Type: Spontaneous
  Country: US (occurrence: US)
  Receive Date: 20130930
  Receipt Date: 20130930
  Transmission Date: 20140515
  Serious: No
  Sender: FDA-Public Use
  Company Number: US-AMGEN-USASP2012060726

PATIENT
  Age: 15 Year
  Sex: Female

DRUGS (1)
  1. ENBREL [Suspect]
     Indication: PSORIATIC ARTHROPATHY
     Dosage: 25 MG, 2 TIMES/WK
     Dates: start: 201204

REACTIONS (7)
  - Abdominal discomfort [Unknown]
  - Rhinorrhoea [Unknown]
  - Flatulence [Unknown]
  - Musculoskeletal pain [Unknown]
  - Injection site pain [Unknown]
  - Injection site irritation [Unknown]
  - Injection site erythema [Unknown]
